FAERS Safety Report 24639675 (Version 1)
Quarter: 2024Q4

REPORT INFORMATION
  Report Type: Spontaneous
  Country: IL (occurrence: IL)
  Receive Date: 20241119
  Receipt Date: 20241119
  Transmission Date: 20250114
  Serious: Yes (Other)
  Sender: AMGEN
  Company Number: IL-AMGEN-ISRSP2024222732

PATIENT
  Age: 23 Year

DRUGS (4)
  1. ADALIMUMAB [Suspect]
     Active Substance: ADALIMUMAB
     Indication: Uveitic glaucoma
     Dosage: 40 MILLIGRAM, Q2WK (PRE-OPERATIVE)
     Route: 065
  2. ADALIMUMAB [Suspect]
     Active Substance: ADALIMUMAB
     Indication: Juvenile idiopathic arthritis
     Dosage: 40 MILLIGRAM, Q2WK (POST-OPERATIVE)
     Route: 065
  3. DEXAMETHASONE [Concomitant]
     Active Substance: DEXAMETHASONE
     Indication: Uveitic glaucoma
     Dosage: 0.1 % PRE-OPERATIVE
     Route: 065
  4. DEXAMETHASONE [Concomitant]
     Active Substance: DEXAMETHASONE
     Dosage: 0.1 % POST-OPERATIVE
     Route: 065

REACTIONS (2)
  - Uveitic glaucoma [Unknown]
  - Off label use [Unknown]
